FAERS Safety Report 14445444 (Version 3)
Quarter: 2018Q1

REPORT INFORMATION
  Report Type: Spontaneous
  Country: DE (occurrence: DE)
  Receive Date: 20180126
  Receipt Date: 20180316
  Transmission Date: 20180509
  Serious: Yes (Other)
  Sender: FDA-Public Use
  Company Number: DE-WEST-WARD PHARMACEUTICALS CORP.-DE-H14001-18-00446

PATIENT
  Age: 55 Year
  Sex: Male
  Weight: 69 kg

DRUGS (90)
  1. RIXIMYO [Suspect]
     Active Substance: RITUXIMAB
     Dosage: 700 MG, UNK (INFUSION RATE 2.08 (ML/MIN))
     Route: 042
     Dates: start: 20171127, end: 20171127
  2. RIXIMYO [Suspect]
     Active Substance: RITUXIMAB
     Dosage: 700 MG, UNK (INFUSION RATE 2.08 (ML/MIN))
     Route: 042
     Dates: start: 20180108, end: 20180108
  3. VINCRISTINE [Suspect]
     Active Substance: VINCRISTINE
     Dosage: 2 MG, UNK (INFUSION RATE 2 (ML/MIN))
     Route: 041
     Dates: start: 20171128, end: 20171128
  4. PREDNISONE. [Suspect]
     Active Substance: PREDNISONE
     Dosage: 400 MG, UNK
     Route: 048
     Dates: start: 20171128, end: 20171201
  5. PREDNISONE. [Suspect]
     Active Substance: PREDNISONE
     Dosage: 400 MG, UNK
     Route: 048
     Dates: start: 20180109, end: 20180112
  6. PREDNISONE. [Suspect]
     Active Substance: PREDNISONE
     Dosage: 400 MG, UNK
     Route: 048
     Dates: start: 20180130, end: 20180202
  7. MESNA. [Concomitant]
     Active Substance: MESNA
     Dosage: 2800 MG, UNK
     Route: 042
     Dates: start: 20180220, end: 20180220
  8. KEVATRIL [Concomitant]
     Active Substance: GRANISETRON HYDROCHLORIDE
     Indication: PROPHYLAXIS
     Dosage: 1 MG, UNK
     Route: 042
     Dates: start: 20171102, end: 20171102
  9. KEVATRIL [Concomitant]
     Active Substance: GRANISETRON HYDROCHLORIDE
     Dosage: 2 MG, UNK
     Route: 042
     Dates: start: 20171220, end: 20171220
  10. KEVATRIL [Concomitant]
     Active Substance: GRANISETRON HYDROCHLORIDE
     Dosage: 2 MG, UNK
     Route: 042
     Dates: start: 20171128, end: 20171128
  11. AMPHO-MORONAL [Concomitant]
     Active Substance: AMPHOTERICIN B
     Dosage: UNK ()
     Route: 048
     Dates: start: 20180129, end: 20180204
  12. TAVEGIL [Concomitant]
     Active Substance: CLEMASTINE FUMARATE
     Route: 042
     Dates: start: 20180219, end: 20180219
  13. RANITIDIN [Concomitant]
     Active Substance: RANITIDINE HYDROCHLORIDE
     Route: 042
     Dates: start: 20171109, end: 20171109
  14. PANTOZOL [Concomitant]
     Active Substance: PANTOPRAZOLE SODIUM
     Indication: PROPHYLAXIS
     Dosage: 40 MG, UNK
     Route: 048
     Dates: start: 20171112
  15. DOXORUBICIN [Suspect]
     Active Substance: DOXORUBICIN
     Dosage: 93 MG, UNK (INFUSION RATE 8.3 (ML/MIN))
     Route: 041
     Dates: start: 20180109, end: 20180109
  16. VINCRISTINE [Suspect]
     Active Substance: VINCRISTINE
     Dosage: 2 MG, UNK (INFUSION RATE 2 (ML/MIN))
     Route: 041
     Dates: start: 20180109, end: 20180109
  17. PREDNISOLUT [Concomitant]
     Active Substance: PREDNISOLONE
     Dosage: 100 MG, UNK
     Route: 042
     Dates: start: 20180129, end: 20180129
  18. TAVEGIL [Concomitant]
     Active Substance: CLEMASTINE FUMARATE
     Indication: PROPHYLAXIS
     Route: 042
     Dates: start: 20171127, end: 20171127
  19. PARACETAMOL [Concomitant]
     Active Substance: ACETAMINOPHEN
     Dosage: 1 G, UNK
     Route: 048
     Dates: start: 20171218, end: 20171218
  20. RANITIDIN [Concomitant]
     Active Substance: RANITIDINE HYDROCHLORIDE
     Route: 042
     Dates: start: 20180129, end: 20180129
  21. NEULASTA [Concomitant]
     Active Substance: PEGFILGRASTIM
     Dosage: 6 MG, UNK
     Route: 058
     Dates: start: 20180111, end: 20180111
  22. UROMITEXAN [Concomitant]
     Active Substance: MESNA
     Indication: PROPHYLAXIS
     Dosage: 400 MG, UNK
     Route: 048
     Dates: start: 20171113, end: 20171113
  23. PREDNISOLUT [Concomitant]
     Active Substance: PREDNISOLONE
     Indication: PROPHYLAXIS
     Dosage: 100 MG, UNK
     Route: 042
     Dates: start: 20171102, end: 20171102
  24. PREDNISOLUT [Concomitant]
     Active Substance: PREDNISOLONE
     Dosage: 100 MG, UNK
     Route: 042
     Dates: start: 20180219, end: 20180219
  25. PREDNISOLUT [Concomitant]
     Active Substance: PREDNISOLONE
     Dosage: 100 MG, UNK
     Route: 042
     Dates: start: 20180108, end: 20180108
  26. KEVATRIL [Concomitant]
     Active Substance: GRANISETRON HYDROCHLORIDE
     Dosage: 2 MG, UNK
     Route: 042
     Dates: start: 20180130, end: 20180130
  27. TAVEGIL [Concomitant]
     Active Substance: CLEMASTINE FUMARATE
     Route: 042
     Dates: start: 20171109, end: 20171109
  28. PARACETAMOL [Concomitant]
     Active Substance: ACETAMINOPHEN
     Dosage: 1 G, UNK
     Route: 048
     Dates: start: 20180129, end: 20180129
  29. DOXORUBICIN [Suspect]
     Active Substance: DOXORUBICIN
     Dosage: 93 MG, UNK (INFUSION RATE 8.33 (ML/MIN))
     Route: 041
     Dates: start: 20171128, end: 20171128
  30. RIXIMYO [Suspect]
     Active Substance: RITUXIMAB
     Dosage: 700 MG, UNK (INFUSION DATE 2.08 (ML/MIN))
     Route: 042
     Dates: start: 20171218, end: 20171218
  31. CYCLOPHOSPHAMIDE. [Suspect]
     Active Substance: CYCLOPHOSPHAMIDE
     Dosage: 1400 MG, UNK (INFUSION RATE 2.08 (ML/MIN))
     Route: 041
     Dates: start: 20171219, end: 20171219
  32. VINCRISTINE [Suspect]
     Active Substance: VINCRISTINE
     Dosage: 2 MG, UNK (INFUSION RATE 2 (ML/MIN))
     Route: 041
     Dates: start: 20180130, end: 20180130
  33. VINCRISTINE [Suspect]
     Active Substance: VINCRISTINE
     Dosage: 2 MG, UNK (INFUSION RATE 2 (ML/MIN))
     Route: 041
     Dates: start: 20180220
  34. PREDNISONE. [Suspect]
     Active Substance: PREDNISONE
     Dosage: 400 MG, UNK
     Route: 048
     Dates: start: 20180220, end: 20180223
  35. PREDNISOLUT [Concomitant]
     Active Substance: PREDNISOLONE
     Dosage: 100 MG, UNK
     Route: 042
     Dates: start: 20171109, end: 20171109
  36. MESNA. [Concomitant]
     Active Substance: MESNA
     Indication: PROPHYLAXIS
     Dosage: 2800 MG, UNK
     Route: 042
     Dates: start: 20171219, end: 20171219
  37. KEVATRIL [Concomitant]
     Active Substance: GRANISETRON HYDROCHLORIDE
     Dosage: 1 MG, UNK
     Route: 042
     Dates: start: 20171114, end: 20171114
  38. KEVATRIL [Concomitant]
     Active Substance: GRANISETRON HYDROCHLORIDE
     Dosage: 2 MG, UNK
     Route: 042
     Dates: start: 20180109, end: 20180109
  39. AMPHO-MORONAL [Concomitant]
     Active Substance: AMPHOTERICIN B
     Dosage: UNK ()
     Route: 048
     Dates: start: 20180219, end: 20180226
  40. PARACETAMOL [Concomitant]
     Active Substance: ACETAMINOPHEN
     Dosage: 1 G, UNK
     Route: 048
     Dates: start: 20180108, end: 20180108
  41. NEULASTA [Concomitant]
     Active Substance: PEGFILGRASTIM
     Dosage: 6 MG, UNK
     Route: 058
     Dates: start: 20171115, end: 20171115
  42. DOXORUBICIN [Suspect]
     Active Substance: DOXORUBICIN
     Dosage: 93 MG, UNK (INFUSION RATE 8.33 (ML/MIN))
     Route: 041
     Dates: start: 20171219, end: 20171219
  43. DOXORUBICIN [Suspect]
     Active Substance: DOXORUBICIN
     Dosage: 93 MG, UNK (INFUSION RATE 8.3 (ML/MIN))
     Route: 041
     Dates: start: 20180130, end: 20180130
  44. DOXORUBICIN [Suspect]
     Active Substance: DOXORUBICIN
     Dosage: 93 MG, UNK (INFUSION RATE 8.3 (ML/MIN))
     Route: 041
     Dates: start: 20180220
  45. RIXIMYO [Suspect]
     Active Substance: RITUXIMAB
     Dosage: 700 MG, UNK (INFUSION RATE 2.08 (ML/MIN))
     Route: 041
     Dates: start: 20180129, end: 20180129
  46. PREDNISOLUT [Concomitant]
     Active Substance: PREDNISOLONE
     Dosage: 100 MG, UNK
     Route: 042
     Dates: start: 20171127, end: 20171127
  47. PREDNISOLUT [Concomitant]
     Active Substance: PREDNISOLONE
     Dosage: 100 MG, UNK
     Route: 042
     Dates: start: 20171218, end: 20171218
  48. MESNA. [Concomitant]
     Active Substance: MESNA
     Dosage: 2800 UNK, UNK
     Route: 042
     Dates: start: 20171128, end: 20171128
  49. MESNA. [Concomitant]
     Active Substance: MESNA
     Dosage: 2800 MG, UNK
     Route: 042
     Dates: start: 20180130, end: 20180130
  50. AMPHO-MORONAL [Concomitant]
     Active Substance: AMPHOTERICIN B
     Indication: PROPHYLAXIS
     Dosage: UNK UNK, BID (2)
     Route: 048
     Dates: start: 20171127, end: 20171203
  51. TAGAMET [Concomitant]
     Active Substance: CIMETIDINE
     Indication: PROPHYLAXIS
     Route: 048
     Dates: start: 20171127, end: 20171127
  52. RANITIDIN [Concomitant]
     Active Substance: RANITIDINE HYDROCHLORIDE
     Route: 042
     Dates: start: 20180108, end: 20180108
  53. NEULASTA [Concomitant]
     Active Substance: PEGFILGRASTIM
     Dosage: 6 MG, UNK
     Route: 058
     Dates: start: 20171130, end: 20171130
  54. NEULASTA [Concomitant]
     Active Substance: PEGFILGRASTIM
     Dosage: 6 MG, UNK
     Route: 058
     Dates: start: 20180222, end: 20180222
  55. VINCRISTINE [Suspect]
     Active Substance: VINCRISTINE
     Indication: DIFFUSE LARGE B-CELL LYMPHOMA
     Dosage: 2 MG, UNK
     Route: 042
     Dates: start: 20171102, end: 20171102
  56. KEVATRIL [Concomitant]
     Active Substance: GRANISETRON HYDROCHLORIDE
     Dosage: 1 MG, UNK
     Route: 042
     Dates: start: 20171113, end: 20171113
  57. AMPHO-MORONAL [Concomitant]
     Active Substance: AMPHOTERICIN B
     Dosage: UNK ()
     Route: 048
     Dates: start: 20180108, end: 20180114
  58. TAVEGIL [Concomitant]
     Active Substance: CLEMASTINE FUMARATE
     Route: 042
     Dates: start: 20171218, end: 20171218
  59. PARACETAMOL [Concomitant]
     Active Substance: ACETAMINOPHEN
     Dosage: 1 G, UNK
     Route: 048
     Dates: start: 20171127, end: 20171127
  60. PARACETAMOL [Concomitant]
     Active Substance: ACETAMINOPHEN
     Dosage: 1 G, UNK
     Route: 048
     Dates: start: 20180219, end: 20180219
  61. RANITIDIN [Concomitant]
     Active Substance: RANITIDINE HYDROCHLORIDE
     Indication: PROPHYLAXIS
     Route: 042
     Dates: start: 20171218, end: 20171218
  62. UROMITEXAN [Concomitant]
     Active Substance: MESNA
     Dosage: 400 MG, UNK
     Route: 048
     Dates: start: 20180109, end: 20180109
  63. UROMITEXAN [Concomitant]
     Active Substance: MESNA
     Dosage: 400 MG, UNK
     Route: 048
     Dates: start: 20180220, end: 20180220
  64. RIXIMYO [Suspect]
     Active Substance: RITUXIMAB
     Indication: DIFFUSE LARGE B-CELL LYMPHOMA
     Dosage: 700 MG, UNK (INFUSION RATE 1.7 (ML/MIN))
     Route: 042
     Dates: start: 20171109, end: 20171109
  65. CYCLOPHOSPHAMIDE. [Suspect]
     Active Substance: CYCLOPHOSPHAMIDE
     Dosage: 1400 MG, UNK (INFUSION RATE 2.08 (ML/MIN))
     Route: 041
     Dates: start: 20180109, end: 20180109
  66. CYCLOPHOSPHAMIDE. [Suspect]
     Active Substance: CYCLOPHOSPHAMIDE
     Dosage: 1400 MG, UNK (INFUSION RATE 2.08 (ML/MIN))
     Route: 041
     Dates: start: 20180130, end: 20180130
  67. CYCLOPHOSPHAMIDE. [Suspect]
     Active Substance: CYCLOPHOSPHAMIDE
     Dosage: 1400 MG, UNK (INFUSION RATE 2.08 (ML/MIN))
     Route: 041
     Dates: start: 20180220
  68. MESNA. [Concomitant]
     Active Substance: MESNA
     Dosage: 2800 MG, UNK
     Route: 042
     Dates: start: 20171113, end: 20171113
  69. MESNA. [Concomitant]
     Active Substance: MESNA
     Dosage: 2800 MG, UNK
     Route: 048
     Dates: start: 20180109, end: 20180109
  70. KEVATRIL [Concomitant]
     Active Substance: GRANISETRON HYDROCHLORIDE
     Dosage: 2 MG, UNK
     Route: 042
     Dates: start: 20171219, end: 20171219
  71. KEVATRIL [Concomitant]
     Active Substance: GRANISETRON HYDROCHLORIDE
     Dosage: 2 MG, UNK
     Route: 042
     Dates: start: 20171129, end: 20171129
  72. KEVATRIL [Concomitant]
     Active Substance: GRANISETRON HYDROCHLORIDE
     Dosage: 2 MG, UNK
     Route: 042
     Dates: start: 20180220, end: 20180220
  73. TAVEGIL [Concomitant]
     Active Substance: CLEMASTINE FUMARATE
     Route: 042
     Dates: start: 20180129, end: 20180129
  74. TAVEGIL [Concomitant]
     Active Substance: CLEMASTINE FUMARATE
     Route: 042
     Dates: start: 20180108, end: 20180108
  75. UROMITEXAN [Concomitant]
     Active Substance: MESNA
     Dosage: 400 MG, UNK
     Route: 048
     Dates: start: 20180130, end: 20180130
  76. DOXORUBICIN [Suspect]
     Active Substance: DOXORUBICIN
     Indication: DIFFUSE LARGE B-CELL LYMPHOMA
     Dosage: 93 MG, UNK (INFUSION RATE 8.3 (ML/MIN))
     Route: 041
     Dates: start: 20171113, end: 20171113
  77. RIXIMYO [Suspect]
     Active Substance: RITUXIMAB
     Dosage: 700 MG, UNK (INFUSION RATE 2.08 (ML/MIN))
     Route: 041
     Dates: start: 20180219
  78. CYCLOPHOSPHAMIDE. [Suspect]
     Active Substance: CYCLOPHOSPHAMIDE
     Indication: DIFFUSE LARGE B-CELL LYMPHOMA
     Dosage: 1400 MG, UNK (INFUSION RATE 2.1 (ML/MIN))
     Route: 041
     Dates: start: 20171113, end: 20171113
  79. CYCLOPHOSPHAMIDE. [Suspect]
     Active Substance: CYCLOPHOSPHAMIDE
     Dosage: 1400 MG, UNK (INFUSION RATE 2.08 (ML/MIN))
     Route: 041
     Dates: start: 20171128, end: 20171128
  80. VINCRISTINE [Suspect]
     Active Substance: VINCRISTINE
     Dosage: 2 MG, UNK (INFUSION RATE 2 (ML/MIN))
     Route: 041
     Dates: start: 20171219, end: 20171219
  81. PREDNISONE. [Suspect]
     Active Substance: PREDNISONE
     Indication: DIFFUSE LARGE B-CELL LYMPHOMA
     Dosage: 400 MG, UNK
     Route: 048
     Dates: start: 20171113, end: 20171116
  82. PREDNISONE. [Suspect]
     Active Substance: PREDNISONE
     Dosage: 400 MG, UNK
     Route: 048
     Dates: start: 20171219, end: 20171222
  83. PREDNISOLUT [Concomitant]
     Active Substance: PREDNISOLONE
     Dosage: 100 MG, UNK
     Route: 048
     Dates: start: 20171103, end: 20171106
  84. KEVATRIL [Concomitant]
     Active Substance: GRANISETRON HYDROCHLORIDE
     Dosage: 2 MG, UNK
     Route: 042
     Dates: start: 20180221, end: 20180221
  85. AMPHO-MORONAL [Concomitant]
     Active Substance: AMPHOTERICIN B
     Dosage: UNK UNK, BID (2)
     Route: 048
     Dates: start: 20171218, end: 20171224
  86. AMPHO-MORONAL [Concomitant]
     Active Substance: AMPHOTERICIN B
     Dosage: UNK ()
     Route: 048
     Dates: start: 20171112, end: 20171118
  87. PARACETAMOL [Concomitant]
     Active Substance: ACETAMINOPHEN
     Indication: PROPHYLAXIS
     Dosage: 1 G, UNK
     Route: 048
     Dates: start: 20171109, end: 20171109
  88. RANITIDIN [Concomitant]
     Active Substance: RANITIDINE HYDROCHLORIDE
     Route: 042
     Dates: start: 20180219, end: 20180219
  89. NEULASTA [Concomitant]
     Active Substance: PEGFILGRASTIM
     Indication: PROPHYLAXIS
     Dosage: 6 MG, UNK
     Route: 058
     Dates: start: 20171221, end: 20171221
  90. NEULASTA [Concomitant]
     Active Substance: PEGFILGRASTIM
     Dosage: 6 MG, UNK
     Route: 058
     Dates: start: 20180201, end: 20180201

REACTIONS (6)
  - Thalamic infarction [Recovered/Resolved]
  - Hypoaesthesia oral [Unknown]
  - Red blood cell count decreased [Unknown]
  - Fibrin D dimer increased [Not Recovered/Not Resolved]
  - Hypoaesthesia [Unknown]
  - Haemoglobin decreased [Unknown]

NARRATIVE: CASE EVENT DATE: 20171114
